FAERS Safety Report 10176584 (Version 1)
Quarter: 2014Q2

REPORT INFORMATION
  Report Type: Spontaneous
  Country: US (occurrence: None)
  Receive Date: 20140515
  Receipt Date: 20140515
  Transmission Date: 20141212
  Serious: Yes (Other)
  Sender: FDA-Public Use
  Company Number: None

PATIENT
  Age: 3 Year
  Sex: Female
  Weight: 14.06 kg

DRUGS (5)
  1. CEPHALEXIN [Suspect]
     Indication: NAIL INFECTION
     Dosage: 250MG/5ML SUSP, 5 ML/1 TEASPOON, THREE TIMES DAY, ORAL-MOUTH
     Route: 048
     Dates: start: 20140429, end: 20140509
  2. ZYTERX [Concomitant]
  3. CINGULAR [Concomitant]
  4. CEPHALEXIN [Suspect]
  5. MULTI VIT [Concomitant]

REACTIONS (2)
  - Psychomotor hyperactivity [None]
  - Feeling abnormal [None]
